FAERS Safety Report 13505669 (Version 1)
Quarter: 2017Q2

REPORT INFORMATION
  Report Type: Spontaneous
  Country: US (occurrence: US)
  Receive Date: 20170502
  Receipt Date: 20170502
  Transmission Date: 20170830
  Serious: No
  Sender: FDA-Public Use
  Company Number: US-ASTRAZENECA-2016SE55307

PATIENT
  Age: 754 Month
  Sex: Male
  Weight: 90.7 kg

DRUGS (5)
  1. ERLOTINIB [Concomitant]
     Active Substance: ERLOTINIB
     Indication: DIABETES MELLITUS
  2. BABY ASPRIN [Concomitant]
     Active Substance: ASPIRIN
     Indication: PROPHYLAXIS
  3. BYDUREON [Suspect]
     Active Substance: EXENATIDE
     Indication: DIABETES MELLITUS
     Route: 065
     Dates: start: 201603
  4. LANTUS [Concomitant]
     Active Substance: INSULIN GLARGINE
     Indication: DIABETES MELLITUS
     Dosage: AS REQUIRED
  5. METFORMIN [Concomitant]
     Active Substance: METFORMIN HYDROCHLORIDE
     Indication: DIABETES MELLITUS

REACTIONS (1)
  - Injection site mass [Unknown]

NARRATIVE: CASE EVENT DATE: 201604
